FAERS Safety Report 23383250 (Version 1)
Quarter: 2024Q1

REPORT INFORMATION
  Report Type: Spontaneous
  Country: None (occurrence: CN)
  Receive Date: 20240109
  Receipt Date: 20240109
  Transmission Date: 20240409
  Serious: Yes (Hospitalization)
  Sender: FDA-Public Use
  Company Number: CN-B.Braun Medical Inc.-2150748

PATIENT
  Age: 73 Year
  Sex: Male

DRUGS (1)
  1. NUTRILIPID I.V. FAT EMULSION [Suspect]
     Active Substance: SOYBEAN OIL
     Indication: Hypoproteinaemia
     Dates: start: 20230531, end: 20230601

REACTIONS (3)
  - Infusion site irritation [None]
  - Infusion site erythema [None]
  - Infusion site swelling [None]
